FAERS Safety Report 16108807 (Version 1)
Quarter: 2019Q1

REPORT INFORMATION
  Report Type: Spontaneous
  Country: DE (occurrence: DE)
  Receive Date: 20190323
  Receipt Date: 20190323
  Transmission Date: 20190418
  Serious: Yes (Life-Threatening)
  Sender: FDA-Public Use
  Company Number: PHHY2019DE052258

PATIENT
  Sex: Female
  Weight: 60 kg

DRUGS (2)
  1. RITALINA [Suspect]
     Active Substance: METHYLPHENIDATE HYDROCHLORIDE
     Indication: ATTENTION DEFICIT/HYPERACTIVITY DISORDER
     Dosage: 80 MG, QD
     Route: 065
     Dates: start: 2014
  2. RITALINA [Suspect]
     Active Substance: METHYLPHENIDATE HYDROCHLORIDE
     Indication: DEPENDENCE

REACTIONS (8)
  - Depression [Unknown]
  - Feeling abnormal [Unknown]
  - Product use issue [Unknown]
  - Heart rate increased [Unknown]
  - Therapy partial responder [Not Recovered/Not Resolved]
  - Burning sensation [Unknown]
  - Hyperhidrosis [Unknown]
  - Blood pressure increased [Unknown]
